FAERS Safety Report 12654895 (Version 1)
Quarter: 2016Q3

REPORT INFORMATION
  Report Type: Spontaneous
  Country: US (occurrence: None)
  Receive Date: 20160815
  Receipt Date: 20160815
  Transmission Date: 20161109
  Serious: Yes (Hospitalization)
  Sender: FDA-Public Use
  Company Number: None

PATIENT
  Age: 68 Year
  Sex: Male
  Weight: 104.5 kg

DRUGS (2)
  1. TRAMADOL. [Suspect]
     Active Substance: TRAMADOL
     Indication: PAIN
     Route: 048
     Dates: start: 20071210, end: 20160201
  2. TRAMADOL. [Suspect]
     Active Substance: TRAMADOL
     Indication: DIABETIC NEUROPATHY
     Route: 048
     Dates: start: 20071210, end: 20160201

REACTIONS (5)
  - Mental status changes [None]
  - Respiratory failure [None]
  - Haemodialysis [None]
  - Confusional state [None]
  - Acute kidney injury [None]

NARRATIVE: CASE EVENT DATE: 20160201
